FAERS Safety Report 18329079 (Version 1)
Quarter: 2020Q3

REPORT INFORMATION
  Report Type: Spontaneous
  Country: US (occurrence: US)
  Receive Date: 20200929
  Receipt Date: 20200929
  Transmission Date: 20201103
  Serious: No
  Sender: FDA-Public Use
  Company Number: None

PATIENT
  Age: 74 Year
  Sex: Male
  Weight: 63 kg

DRUGS (3)
  1. LISINOPRIL. [Concomitant]
     Active Substance: LISINOPRIL
  2. AMITIZA [Suspect]
     Active Substance: LUBIPROSTONE
     Indication: INFLAMMATORY BOWEL DISEASE
     Dosage: ?          QUANTITY:60 CAPSULE(S);?
     Route: 048
     Dates: start: 20200929, end: 20200929
  3. VITAMIN TABLETS [Concomitant]

REACTIONS (4)
  - Blood pressure decreased [None]
  - Nausea [None]
  - Abdominal pain upper [None]
  - Abdominal distension [None]

NARRATIVE: CASE EVENT DATE: 20200929
